FAERS Safety Report 7734668-9 (Version None)
Quarter: 2011Q3

REPORT INFORMATION
  Report Type: 
  Country: None (occurrence: None)
  Receive Date: 20110907
  Receipt Date: 20110902
  Transmission Date: 20111222
  Serious: Yes (Hospitalization)
  Sender: FDA-Public Use
  Company Number: US-MERCK-1108USA02777

PATIENT
  Age: 70 Year
  Sex: Female

DRUGS (9)
  1. ZOCOR [Concomitant]
     Route: 048
  2. LASIX [Concomitant]
     Route: 065
  3. LANTUS [Concomitant]
     Route: 065
  4. LISINOPRIL [Concomitant]
     Route: 065
  5. VERAMIL [Concomitant]
     Route: 065
  6. AMARYL [Concomitant]
     Route: 065
  7. JANUMET [Suspect]
     Indication: DIABETES MELLITUS
     Route: 048
     Dates: start: 20110730, end: 20110815
  8. ASPIRIN [Concomitant]
     Route: 065
  9. FOLIC ACID [Concomitant]
     Route: 065

REACTIONS (2)
  - RENAL FAILURE ACUTE [None]
  - DIARRHOEA [None]
